FAERS Safety Report 7151594-7 (Version None)
Quarter: 2010Q4

REPORT INFORMATION
  Report Type: 
  Country: None (occurrence: None)
  Receive Date: 20101210
  Receipt Date: 20101208
  Transmission Date: 20110411
  Serious: Yes (Other)
  Sender: FDA-Public Use
  Company Number: CN-PFIZER INC-2010166502

PATIENT

DRUGS (1)
  1. SULPERAZON [Suspect]
     Indication: PERITONITIS BACTERIAL

REACTIONS (1)
  - HEPATIC LESION [None]
